FAERS Safety Report 4416920-8 (Version None)
Quarter: 2004Q3

REPORT INFORMATION
  Report Type: 
  Country: None (occurrence: None)
  Receive Date: 20040802
  Receipt Date: 20040727
  Transmission Date: 20050211
  Serious: Yes (Other)
  Sender: FDA-Public Use
  Company Number: 2004-07-1252

PATIENT
  Age: 51 Year
  Sex: Male
  Weight: 78 kg

DRUGS (4)
  1. PEG-INTRON [Suspect]
     Dosage: 64 MCG QW SUBCUTANEOUS
     Route: 058
     Dates: start: 20021023, end: 20030801
  2. REBETOL [Suspect]
     Dosage: ORAL
     Route: 048
     Dates: start: 20021023, end: 20030801
  3. METOPROLOL [Concomitant]
  4. LISINOPRIL [Concomitant]

REACTIONS (1)
  - FACTOR VIII DEFICIENCY [None]
